FAERS Safety Report 5860460-6 (Version None)
Quarter: 2008Q3

REPORT INFORMATION
  Report Type: 
  Country: None (occurrence: None)
  Receive Date: 20080827
  Receipt Date: 20070914
  Transmission Date: 20090109
  Serious: No
  Sender: FDA-Public Use
  Company Number: US-ABBOTT-07P-163-0377019-00

PATIENT
  Sex: Male
  Weight: 71.732 kg

DRUGS (5)
  1. COATED PDS [Suspect]
     Indication: BLOOD CHOLESTEROL INCREASED
     Route: 048
     Dates: start: 20070701
  2. METHYLPREDNISOLONE [Interacting]
     Indication: HYPERSENSITIVITY
     Dates: start: 20070904, end: 20070910
  3. MONTELUKAST SODIUM [Interacting]
     Indication: HYPERSENSITIVITY
     Dates: start: 20070904
  4. FAMOTIDINE [Interacting]
     Indication: DRUG USE FOR UNKNOWN INDICATION
     Dates: start: 20070904
  5. EZETIMIBE [Concomitant]
     Indication: DRUG USE FOR UNKNOWN INDICATION

REACTIONS (2)
  - DRUG INTERACTION [None]
  - FLUSHING [None]
